FAERS Safety Report 25807249 (Version 1)
Quarter: 2025Q3

REPORT INFORMATION
  Report Type: Spontaneous
  Country: US (occurrence: US)
  Receive Date: 20250916
  Receipt Date: 20250916
  Transmission Date: 20251020
  Serious: Yes (Death, Other)
  Sender: BAYER HEALTHCARE LLC
  Company Number: US-BAYER-2025A118941

PATIENT
  Age: 79 Year
  Sex: Female

DRUGS (3)
  1. MILK OF MAGNESIA CHERRY [Suspect]
     Active Substance: MAGNESIUM HYDROXIDE
     Indication: Prophylaxis
     Route: 048
  2. OPIUM [Concomitant]
     Active Substance: OPIUM
  3. MORPHINE [Concomitant]
     Active Substance: MORPHINE
     Indication: Neuralgia

REACTIONS (2)
  - Colon cancer [Fatal]
  - Septic shock [Fatal]
